FAERS Safety Report 7153563-X (Version None)
Quarter: 2010Q4

REPORT INFORMATION
  Report Type: 
  Country: None (occurrence: None)
  Receive Date: 20101213
  Receipt Date: 20101202
  Transmission Date: 20110411
  Serious: Yes (Hospitalization, Other)
  Sender: FDA-Public Use
  Company Number: PHHO2010AR17797

PATIENT
  Sex: Female
  Weight: 74 kg

DRUGS (13)
  1. BLINDED ALISKIREN ALI+TAB+CF [Suspect]
     Dosage: CODE NOT BROKEN
     Route: 048
     Dates: start: 20100826, end: 20101122
  2. ENALAPRIL MALEATE [Suspect]
     Dosage: CODE NOT BROKEN
     Route: 048
     Dates: start: 20100826, end: 20101122
  3. BLINDED NO TREATMENT RECEIVED NOMED [Suspect]
     Dosage: CODE NOT BROKEN
     Route: 048
     Dates: start: 20100826, end: 20101122
  4. BLINDED ALISKIREN ALI+TAB+CF [Suspect]
     Dosage: CODE NOT BROKEN
     Route: 048
     Dates: start: 20101125
  5. ENALAPRIL MALEATE [Suspect]
     Dosage: CODE NOT BROKEN
     Route: 048
     Dates: start: 20101125
  6. BLINDED NO TREATMENT RECEIVED NOMED [Suspect]
     Dosage: CODE NOT BROKEN
     Route: 048
     Dates: start: 20101125
  7. COMPARATOR ENALAPRIL [Suspect]
     Dosage: UNK
  8. ALISKIREN [Suspect]
     Indication: CARDIAC FAILURE
     Dosage: UNK
  9. SPIRONOLACTONE [Suspect]
     Indication: CARDIAC FAILURE
  10. FUROSEMIDE [Suspect]
     Indication: CARDIAC FAILURE
  11. ASPIRIN [Concomitant]
     Indication: CARDIAC FAILURE
  12. CARVEDILOL [Concomitant]
     Indication: CARDIAC FAILURE
  13. RANITIDINE [Concomitant]
     Indication: GASTRITIS

REACTIONS (5)
  - ABDOMINAL PAIN [None]
  - HYPERHIDROSIS [None]
  - HYPOTENSION [None]
  - PALLOR [None]
  - RENAL FAILURE [None]
